FAERS Safety Report 20430746 (Version 3)
Quarter: 2022Q3

REPORT INFORMATION
  Report Type: Report from Study
  Country: FR (occurrence: FR)
  Receive Date: 20220204
  Receipt Date: 20220707
  Transmission Date: 20221027
  Serious: Yes (Hospitalization)
  Sender: FDA-Public Use
  Company Number: FR-SERVIER-S21002176

PATIENT

DRUGS (8)
  1. PEGASPARGASE [Suspect]
     Active Substance: PEGASPARGASE
     Indication: Acute lymphocytic leukaemia
     Dosage: 860 IU, D8, D36, CONSOLIDATION PHASE
     Route: 042
     Dates: start: 20210205, end: 20210330
  2. PEGASPARGASE [Suspect]
     Active Substance: PEGASPARGASE
     Dosage: 1020 IU, D12, D26 OF INDUCTION
     Route: 042
     Dates: start: 20201214, end: 20201228
  3. VINCRISTINE [Suspect]
     Active Substance: VINCRISTINE
     Indication: Acute lymphocytic leukaemia
     Dosage: 1.3 MG, D1, D8, D29, D36 CONSOLIDATION
     Route: 042
     Dates: start: 20210118, end: 20210222
  4. METHOTREXATE [Suspect]
     Active Substance: METHOTREXATE
     Indication: Acute lymphocytic leukaemia
     Dosage: 22.5 MG, 1X/WEEK
     Route: 048
     Dates: start: 20210118, end: 20210420
  5. METHOTREXATE [Suspect]
     Active Substance: METHOTREXATE
     Dosage: 12 MG, D2, D30 CONSOLIDATION
     Route: 037
     Dates: start: 20210119, end: 20210330
  6. DEXAMETHASONE [Suspect]
     Active Substance: DEXAMETHASONE
     Indication: Acute lymphocytic leukaemia
     Dosage: 5 MG, D1 TO D5, D29 TO D33
     Route: 048
     Dates: start: 20210118, end: 20210219
  7. MERCAPTOPURINE [Suspect]
     Active Substance: MERCAPTOPURINE
     Indication: Acute lymphocytic leukaemia
     Dosage: 30 MG, D1 TO D21, D29 TO D49
     Route: 048
     Dates: start: 20210118, end: 20210303
  8. MERCAPTOPURINE [Suspect]
     Active Substance: MERCAPTOPURINE
     Dosage: 30 MG, D1 TO D21, D29 TO D49
     Route: 048
     Dates: start: 20210330, end: 20210419

REACTIONS (6)
  - Intussusception [Unknown]
  - Febrile bone marrow aplasia [Recovered/Resolved]
  - Cholecystitis [Recovered/Resolved]
  - Hyperlipidaemia [Unknown]
  - Bronchopulmonary aspergillosis [Recovered/Resolved]
  - Colitis [Recovered/Resolved]

NARRATIVE: CASE EVENT DATE: 20210128
